FAERS Safety Report 9753429 (Version 2)
Quarter: 2013Q4

REPORT INFORMATION
  Report Type: Spontaneous
  Country: US (occurrence: US)
  Receive Date: 20131213
  Receipt Date: 20131213
  Transmission Date: 20140711
  Serious: Yes (Other)
  Sender: FDA-Public Use
  Company Number: US-TEVA-403968USA

PATIENT
  Age: 30 Year
  Sex: Female
  Weight: 57.66 kg

DRUGS (2)
  1. PARAGARD 380A [Suspect]
     Indication: CONTRACEPTION
     Route: 015
     Dates: start: 200905, end: 20130506
  2. METOPROLOL [Concomitant]
     Indication: HYPERTENSION

REACTIONS (2)
  - Device dislocation [Recovered/Resolved]
  - Menstruation delayed [Unknown]
